FAERS Safety Report 8333171-5 (Version None)
Quarter: 2012Q2

REPORT INFORMATION
  Report Type: 
  Country: None (occurrence: None)
  Receive Date: 20120503
  Receipt Date: 20120429
  Transmission Date: 20120825
  Serious: Yes (Other)
  Sender: FDA-Public Use
  Company Number: US-PFIZER INC-2012105454

PATIENT
  Sex: Female
  Weight: 69 kg

DRUGS (1)
  1. TYGACIL [Suspect]
     Dosage: 50 MG, 2X/DAY
     Dates: start: 20120418

REACTIONS (1)
  - THROMBOCYTOSIS [None]
